FAERS Safety Report 14799922 (Version 1)
Quarter: 2018Q2

REPORT INFORMATION
  Report Type: Spontaneous
  Country: FR (occurrence: FR)
  Receive Date: 20180424
  Receipt Date: 20180424
  Transmission Date: 20180711
  Serious: Yes (Death, Hospitalization)
  Sender: FDA-Public Use
  Company Number: FR-BAYER-2015-439545

PATIENT
  Age: 93 Year
  Sex: Female

DRUGS (11)
  1. BACTRIM-FORTE [Suspect]
     Active Substance: SULFAMETHOXAZOLE\TRIMETHOPRIM
     Dosage: UNK
     Route: 048
     Dates: start: 20150909, end: 20150918
  2. ULTRAVIST [Suspect]
     Active Substance: IOPROMIDE
     Indication: COMPUTERISED TOMOGRAM
     Dosage: 27 G, UNK
     Route: 042
     Dates: start: 20150905, end: 20150905
  3. PREVISCAN (FLUINDIONE) [Suspect]
     Active Substance: FLUINDIONE
     Dosage: 20 MG, QD
     Route: 048
     Dates: end: 20150919
  4. DEBRIDAT [Concomitant]
     Active Substance: TRIMEBUTINE MALEATE
  5. COVERSYL [Suspect]
     Active Substance: PERINDOPRIL
     Dosage: 5 MG, QD
     Route: 048
     Dates: end: 20150918
  6. LEXOMIL [Concomitant]
     Active Substance: BROMAZEPAM
  7. TEMERIT [Concomitant]
     Active Substance: NEBIVOLOL
  8. FUROSEMIDE. [Suspect]
     Active Substance: FUROSEMIDE
     Dosage: 40 MG, QD
     Route: 048
     Dates: end: 20150919
  9. FORLAX [Concomitant]
     Active Substance: POLYETHYLENE GLYCOL 4000
  10. TAHOR [Concomitant]
     Active Substance: ATORVASTATIN CALCIUM
  11. LERCAN [Concomitant]
     Active Substance: LERCANIDIPINE

REACTIONS (2)
  - Neoplasm malignant [Fatal]
  - Acute kidney injury [Recovered/Resolved]

NARRATIVE: CASE EVENT DATE: 20150919
